FAERS Safety Report 16747310 (Version 1)
Quarter: 2019Q3

REPORT INFORMATION
  Report Type: Spontaneous
  Country: US (occurrence: US)
  Receive Date: 20190827
  Receipt Date: 20190827
  Transmission Date: 20191005
  Serious: Yes (Other)
  Sender: FDA-Public Use
  Company Number: US-INDIVIOR EUROPE LIMITED-INDV-121239-2019

PATIENT
  Sex: Female

DRUGS (1)
  1. SUBLOCADE [Suspect]
     Active Substance: BUPRENORPHINE
     Indication: PAIN
     Dosage: UNK, QMO
     Route: 065
     Dates: start: 20190815

REACTIONS (9)
  - Agitation [Recovered/Resolved]
  - Headache [Not Recovered/Not Resolved]
  - Drug intolerance [Unknown]
  - Nausea [Not Recovered/Not Resolved]
  - Seizure [Unknown]
  - Off label use [Not Recovered/Not Resolved]
  - Constipation [Not Recovered/Not Resolved]
  - Cold sweat [Not Recovered/Not Resolved]
  - Crying [Not Recovered/Not Resolved]

NARRATIVE: CASE EVENT DATE: 201908
